FAERS Safety Report 21564553 (Version 1)
Quarter: 2022Q4

REPORT INFORMATION
  Report Type: Spontaneous
  Country: JP (occurrence: JP)
  Receive Date: 20221108
  Receipt Date: 20221108
  Transmission Date: 20230113
  Serious: Yes (Other)
  Sender: FDA-Public Use
  Company Number: JP-NOVAST LABORATORIES INC.-2022NOV000320

PATIENT
  Age: 43 Year
  Sex: Male

DRUGS (3)
  1. OXALIPLATIN [Suspect]
     Active Substance: OXALIPLATIN
     Indication: Rectal cancer stage III
     Dosage: 130 MILLIGRAM/SQ. METER ON DAY 1
     Route: 065
  2. BEVACIZUMAB [Suspect]
     Active Substance: BEVACIZUMAB
     Indication: Rectal cancer stage III
     Dosage: 7.5 MG/KG ON DAY 1
     Route: 065
  3. CAPECITABINE [Suspect]
     Active Substance: CAPECITABINE
     Indication: Rectal cancer stage III
     Dosage: 2000 MILLIGRAM/SQ. METER ON DAYS 1?14, EVERY 3 WEEKS
     Route: 048

REACTIONS (6)
  - Stomal varices [Recovered/Resolved]
  - Splenomegaly [Unknown]
  - Hepatomegaly [Unknown]
  - Portal hypertension [Unknown]
  - Neuropathy peripheral [Unknown]
  - Venoocclusive liver disease [Unknown]
